FAERS Safety Report 10142142 (Version 2)
Quarter: 2014Q2

REPORT INFORMATION
  Report Type: Report from Study
  Country: CA (occurrence: CA)
  Receive Date: 20140429
  Receipt Date: 20140501
  Transmission Date: 20141212
  Serious: Yes (Death)
  Sender: FDA-Public Use
  Company Number: PHHY2014CA051870

PATIENT
  Sex: Female

DRUGS (3)
  1. ACLASTA [Suspect]
     Indication: OSTEOPOROSIS
     Dosage: UNK
     Route: 042
     Dates: start: 20110503
  2. ACLASTA [Suspect]
     Dosage: UNK
     Route: 042
     Dates: start: 20120620
  3. ACLASTA [Suspect]
     Dosage: UNK
     Route: 042
     Dates: start: 20130724

REACTIONS (1)
  - Death [Fatal]
